FAERS Safety Report 17893351 (Version 3)
Quarter: 2021Q2

REPORT INFORMATION
  Report Type: Report from Study
  Country: None (occurrence: US)
  Receive Date: 20200615
  Receipt Date: 20210416
  Transmission Date: 20210717
  Serious: Yes (Hospitalization, Other)
  Sender: FDA-Public Use
  Company Number: US-ABBVIE-20K-163-3443321-00

PATIENT
  Sex: Female

DRUGS (2)
  1. HUMIRA [Suspect]
     Active Substance: ADALIMUMAB
     Indication: PSORIATIC ARTHROPATHY
     Route: 058
  2. HUMIRA [Suspect]
     Active Substance: ADALIMUMAB
     Indication: PSORIASIS
     Route: 058
     Dates: start: 201912

REACTIONS (7)
  - Cholecystectomy [Unknown]
  - Joint swelling [Recovering/Resolving]
  - Psoriasis [Unknown]
  - Lipoma [Unknown]
  - Surgical failure [Unknown]
  - Lumbar vertebral fracture [Unknown]
  - Spondylitis [Unknown]
